FAERS Safety Report 9173724 (Version 1)
Quarter: 2013Q1

REPORT INFORMATION
  Report Type: Spontaneous
  Country: JP (occurrence: JP)
  Receive Date: 20130320
  Receipt Date: 20130320
  Transmission Date: 20140127
  Serious: Yes (Other)
  Sender: FDA-Public Use
  Company Number: JP-ASTELLAS-2013JP004014

PATIENT
  Age: 7 Year
  Sex: 0

DRUGS (7)
  1. PROGRAF [Suspect]
     Indication: PROPHYLAXIS AGAINST GRAFT VERSUS HOST DISEASE
     Route: 065
  2. METHOTREXATE [Concomitant]
     Indication: PROPHYLAXIS AGAINST GRAFT VERSUS HOST DISEASE
     Route: 065
  3. METHOTREXATE [Concomitant]
     Route: 065
  4. METHOTREXATE [Concomitant]
     Route: 065
  5. ALKERAN                            /00006401/ [Concomitant]
     Indication: PREMEDICATION
     Route: 065
  6. CICLOSPORIN [Concomitant]
     Indication: CARDIAC HYPERTROPHY
     Route: 065
  7. CICLOSPORIN [Concomitant]
     Indication: PERICARDIAL EFFUSION

REACTIONS (6)
  - Drug ineffective [Unknown]
  - Chronic graft versus host disease [Unknown]
  - Acute graft versus host disease [Recovering/Resolving]
  - Cardiac hypertrophy [Unknown]
  - Pericardial effusion [Unknown]
  - Renal impairment [Unknown]
